FAERS Safety Report 12917993 (Version 1)
Quarter: 2016Q4

REPORT INFORMATION
  Report Type: Spontaneous
  Country: US (occurrence: US)
  Receive Date: 20161107
  Receipt Date: 20161107
  Transmission Date: 20170207
  Serious: No
  Sender: FDA-Public Use
  Company Number: US-ALLERGAN-1648733

PATIENT
  Sex: Male

DRUGS (1)
  1. SILODOSIN UNK [Suspect]
     Active Substance: SILODOSIN
     Indication: BENIGN PROSTATIC HYPERPLASIA
     Dosage: 4 MG, UNKNOWN
     Route: 065

REACTIONS (1)
  - Nasal congestion [Unknown]
